FAERS Safety Report 11718076 (Version 2)
Quarter: 2016Q2

REPORT INFORMATION
  Report Type: Report from Study
  Country: DK (occurrence: DK)
  Receive Date: 20151110
  Receipt Date: 20160620
  Transmission Date: 20160815
  Serious: Yes (Hospitalization, Other)
  Sender: FDA-Public Use
  Company Number: DK-ABBVIE-15K-044-1496634-00

PATIENT
  Age: 61 Year
  Sex: Female
  Weight: 101 kg

DRUGS (3)
  1. HUMIRA [Suspect]
     Active Substance: ADALIMUMAB
     Indication: RHEUMATOID ARTHRITIS
     Route: 058
     Dates: start: 20150825, end: 20150930
  2. PLATINUM [Suspect]
     Active Substance: PLATINUM
     Indication: PRODUCT USED FOR UNKNOWN INDICATION
     Route: 065
  3. METHOTREXATE [Concomitant]
     Active Substance: METHOTREXATE
     Indication: RHEUMATOID ARTHRITIS
     Dates: start: 20130110

REACTIONS (11)
  - Infection [Recovered/Resolved]
  - Stomatitis [Recovered/Resolved]
  - Haemoglobin decreased [Unknown]
  - Pancreatitis acute [Unknown]
  - Cholelithiasis [Unknown]
  - Renal impairment [Recovered/Resolved]
  - Amylase increased [Recovered/Resolved]
  - Drug-induced liver injury [Unknown]
  - Liver disorder [Recovered/Resolved]
  - Nausea [Unknown]
  - Vomiting [Unknown]

NARRATIVE: CASE EVENT DATE: 20150825
